FAERS Safety Report 8219632-8 (Version None)
Quarter: 2012Q1

REPORT INFORMATION
  Report Type: 
  Country: None (occurrence: None)
  Receive Date: 20120319
  Receipt Date: 20120306
  Transmission Date: 20120608
  Serious: Yes (Other)
  Sender: FDA-Public Use
  Company Number: BE-ELI_LILLY_AND_COMPANY-BE201203002851

PATIENT
  Sex: Male

DRUGS (2)
  1. OLANZAPINE [Suspect]
     Dosage: 300 MG, UNKNOWN
     Route: 030
  2. OLANZAPINE [Suspect]
     Dosage: 405 MG, UNKNOWN
     Route: 030
     Dates: start: 20120306

REACTIONS (3)
  - DYSARTHRIA [None]
  - BRADYCARDIA [None]
  - SEDATION [None]
